FAERS Safety Report 9114633 (Version 1)
Quarter: 2013Q1

REPORT INFORMATION
  Report Type: Spontaneous
  Country: US (occurrence: US)
  Receive Date: 20130208
  Receipt Date: 20130208
  Transmission Date: 20140127
  Serious: No
  Sender: FDA-Public Use
  Company Number: US-B.I. PHARMACEUTICALS,INC./RIDGEFIELD-2013-BI-03264BP

PATIENT
  Sex: Male

DRUGS (14)
  1. PRADAXA [Suspect]
     Indication: ATRIAL FIBRILLATION
     Dosage: 300 MG
     Route: 048
     Dates: start: 2010
  2. OXYBUTYNIN [Concomitant]
     Indication: PROSTATOMEGALY
     Route: 048
  3. CARVEDILOL [Concomitant]
     Indication: HYPERTENSION
     Route: 048
  4. AMLODIPINE [Concomitant]
     Indication: HYPERTENSION
     Dosage: 5 MG
     Route: 048
  5. TESTOSTERONE [Concomitant]
     Indication: BLOOD TESTOSTERONE DECREASED
  6. TORSEMIDE [Concomitant]
     Indication: HYPERTENSION
     Dosage: 10 MG
     Route: 048
  7. OMEPRAZOLE [Concomitant]
     Indication: GASTROOESOPHAGEAL REFLUX DISEASE
     Dosage: 20 MG
     Route: 048
  8. METFORMIN [Concomitant]
     Indication: DIABETES MELLITUS
     Dosage: 2000 MG
     Route: 048
  9. LOVASTATIN [Concomitant]
     Indication: BLOOD CHOLESTEROL INCREASED
     Dosage: 40 MG
     Route: 048
  10. POTASSIUM [Concomitant]
     Indication: BLOOD POTASSIUM DECREASED
     Route: 048
  11. LEVOTHYROXINE [Concomitant]
     Indication: HYPOTHYROIDISM
     Dosage: 100 MCG
     Route: 048
  12. DOXAZOSIN [Concomitant]
     Indication: PROSTATOMEGALY
     Route: 048
  13. TRAMADOL [Concomitant]
     Indication: ARTHRALGIA
     Route: 048
  14. DETROL [Concomitant]
     Dosage: 4 MG
     Route: 048

REACTIONS (4)
  - Rectal haemorrhage [Not Recovered/Not Resolved]
  - Haematochezia [Not Recovered/Not Resolved]
  - Anorectal discomfort [Not Recovered/Not Resolved]
  - Gastric ulcer [Not Recovered/Not Resolved]
